FAERS Safety Report 4382720-0 (Version None)
Quarter: 2004Q2

REPORT INFORMATION
  Report Type: 
  Country: None (occurrence: None)
  Receive Date: 20040614
  Receipt Date: 20040330
  Transmission Date: 20050107
  Serious: Yes (Hospitalization)
  Sender: FDA-Public Use
  Company Number: S04-USA-01889-01

PATIENT
  Age: 29 Year
  Sex: Female

DRUGS (5)
  1. LEXAPRO [Suspect]
     Indication: DEPRESSION
     Dosage: SEE IMAGE
     Route: 048
     Dates: start: 20040101, end: 20040327
  2. LEXAPRO [Suspect]
     Indication: DEPRESSION
     Dosage: SEE IMAGE
     Route: 048
     Dates: start: 20040330
  3. NEURONTIN [Concomitant]
  4. TRAMADOL [Concomitant]
  5. GLUCOTROL [Concomitant]

REACTIONS (3)
  - ALANINE AMINOTRANSFERASE INCREASED [None]
  - ASPARTATE AMINOTRANSFERASE INCREASED [None]
  - URINARY TRACT INFECTION [None]
